FAERS Safety Report 6834656-0 (Version None)
Quarter: 2010Q3

REPORT INFORMATION
  Report Type: 
  Country: None (occurrence: None)
  Receive Date: 20100712
  Receipt Date: 20071022
  Transmission Date: 20110219
  Serious: Yes (Other)
  Sender: FDA-Public Use
  Company Number: US-PFIZER INC-2007029680

PATIENT
  Sex: Male
  Weight: 75.3 kg

DRUGS (12)
  1. CHANTIX [Suspect]
     Indication: SMOKING CESSATION THERAPY
     Route: 048
     Dates: start: 20070404
  2. ADVAIR DISKUS 100/50 [Concomitant]
  3. SPIRIVA [Concomitant]
  4. ALBUTEROL [Concomitant]
  5. OXYGEN [Concomitant]
  6. ASPIRIN [Concomitant]
  7. ZOCOR [Concomitant]
  8. HUMIBID [Concomitant]
  9. DIURETICS [Concomitant]
     Indication: OEDEMA PERIPHERAL
  10. POTASSIUM [Concomitant]
  11. NEXIUM [Concomitant]
  12. FUROSEMIDE [Concomitant]

REACTIONS (2)
  - NOCTURIA [None]
  - URINE OUTPUT INCREASED [None]
